FAERS Safety Report 25717897 (Version 1)
Quarter: 2025Q3

REPORT INFORMATION
  Report Type: Spontaneous
  Country: EU (occurrence: EU)
  Receive Date: 20250822
  Receipt Date: 20250822
  Transmission Date: 20251021
  Serious: Yes (Life-Threatening, Hospitalization, Other)
  Sender: REGENERON
  Company Number: None

PATIENT
  Age: 62 Year
  Sex: Male

DRUGS (2)
  1. LIBTAYO [Suspect]
     Active Substance: CEMIPLIMAB-RWLC
     Indication: Head and neck cancer metastatic
     Dosage: 10 CYCLES ADMINISTERED IN TOTAL
     Route: 042
     Dates: start: 20241202, end: 20250627
  2. MAYSIGLU 100mg [Concomitant]
     Dosage: 1-0-0

REACTIONS (4)
  - Colitis [Recovering/Resolving]
  - Diarrhoea [Recovering/Resolving]
  - Weight decreased [Recovering/Resolving]
  - C-reactive protein increased [Recovering/Resolving]

NARRATIVE: CASE EVENT DATE: 20250707
